FAERS Safety Report 5721003-0 (Version None)
Quarter: 2008Q2

REPORT INFORMATION
  Report Type: 
  Country: None (occurrence: None)
  Receive Date: 20080423
  Receipt Date: 20071120
  Transmission Date: 20081010
  Serious: Yes (Other)
  Sender: FDA-Public Use
  Company Number: 251659

PATIENT
  Age: 55 Year
  Sex: Female
  Weight: 61.2 kg

DRUGS (2)
  1. AVASTIN [Suspect]
     Indication: BREAST CANCER METASTATIC
     Dosage: 15 MG/KG, Q3W, INTRAVENOUS
     Route: 042
     Dates: start: 20060918
  2. TAXOL [Suspect]
     Indication: BREAST CANCER METASTATIC

REACTIONS (1)
  - DISEASE PROGRESSION [None]
